FAERS Safety Report 15894817 (Version 1)
Quarter: 2019Q1

REPORT INFORMATION
  Report Type: Spontaneous
  Country: CA (occurrence: CA)
  Receive Date: 20190131
  Receipt Date: 20190131
  Transmission Date: 20190417
  Serious: Yes (Death, Hospitalization, Other)
  Sender: FDA-Public Use
  Company Number: CA-SAKK-2019SA023282AA

PATIENT
  Sex: Male

DRUGS (4)
  1. PREDNISONE. [Suspect]
     Active Substance: PREDNISONE
     Indication: RHEUMATOID ARTHRITIS
     Dosage: PROLONGED COURSE
  2. METHOTREXATE. [Suspect]
     Active Substance: METHOTREXATE
     Indication: RHEUMATOID ARTHRITIS
  3. HYDROXYCHLOROQUINE SULFATE. [Suspect]
     Active Substance: HYDROXYCHLOROQUINE SULFATE
     Indication: RHEUMATOID ARTHRITIS
  4. LEFLUNOMIDE. [Suspect]
     Active Substance: LEFLUNOMIDE
     Indication: RHEUMATOID ARTHRITIS

REACTIONS (21)
  - Colitis [Fatal]
  - Strongyloidiasis [Fatal]
  - Headache [Fatal]
  - Decreased appetite [Fatal]
  - Diarrhoea [Fatal]
  - HTLV-1 carrier [Unknown]
  - Clostridium difficile infection [Unknown]
  - Confusional state [Fatal]
  - Seizure [Fatal]
  - Bacteraemia [Unknown]
  - Escherichia infection [Unknown]
  - Nausea [Fatal]
  - Gastrointestinal haemorrhage [Fatal]
  - Somnolence [Fatal]
  - Vomiting [Fatal]
  - Stress ulcer [Fatal]
  - Pyrexia [Fatal]
  - Abdominal pain [Fatal]
  - Weight decreased [Fatal]
  - Depressed level of consciousness [Fatal]
  - Venous thrombosis [Fatal]

NARRATIVE: CASE EVENT DATE: 201408
